FAERS Safety Report 8946088 (Version 1)
Quarter: 2012Q4

REPORT INFORMATION
  Report Type: 
  Country: US (occurrence: US)
  Receive Date: 20121205
  Receipt Date: 20121205
  Transmission Date: 20130627
  Serious: Yes (Other)
  Sender: FDA-Public Use
  Company Number: US-BAYER-2012-124676

PATIENT
  Age: 72 Year
  Sex: Female

DRUGS (1)
  1. CIPRO [Suspect]
     Dosage: UNK

REACTIONS (4)
  - Gastrointestinal disorder [None]
  - Toxicity to various agents [None]
  - Weight decreased [None]
  - Malaise [None]
